FAERS Safety Report 8000401-9 (Version None)
Quarter: 2011Q4

REPORT INFORMATION
  Report Type: 
  Country: None (occurrence: None)
  Receive Date: 20111222
  Receipt Date: 20111026
  Transmission Date: 20120403
  Serious: Yes (Other)
  Sender: FDA-Public Use
  Company Number: US-BRISTOL-MYERS SQUIBB COMPANY-15036767

PATIENT
  Sex: Male
  Weight: 47 kg

DRUGS (10)
  1. PEDI-BORO [Suspect]
     Route: 061
     Dates: start: 20010207, end: 20010207
  2. VITAMINS NOS [Suspect]
  3. LISINOPRIL [Suspect]
     Indication: HYPERTENSION
     Route: 065
  4. GLUCOTROL XL [Suspect]
     Indication: DIABETES MELLITUS
     Dosage: GASTRO-RESISTANT TABLET
     Route: 065
     Dates: start: 19980101, end: 19980101
  5. GLIPIZIDE [Suspect]
     Indication: DIABETES MELLITUS
     Dates: start: 20080101
  6. ASPIRIN [Suspect]
     Indication: BACK PAIN
     Dosage: RESUMED IN 2001
  7. GLUCOPHAGE [Suspect]
     Indication: DIABETES MELLITUS
  8. GLUCOTROL [Suspect]
     Indication: TYPE 2 DIABETES MELLITUS
     Route: 065
  9. CITRACAL + D [Suspect]
     Route: 065
     Dates: end: 20010201
  10. PRAVASTATIN SODIUM [Suspect]
     Indication: BLOOD CHOLESTEROL INCREASED
     Route: 065

REACTIONS (7)
  - ERYTHEMA [None]
  - INSOMNIA [None]
  - BLOOD GLUCOSE INCREASED [None]
  - RASH [None]
  - PRURITUS [None]
  - GLYCOSYLATED HAEMOGLOBIN INCREASED [None]
  - DRUG HYPERSENSITIVITY [None]
